FAERS Safety Report 7782084-6 (Version None)
Quarter: 2011Q3

REPORT INFORMATION
  Report Type: 
  Country: None (occurrence: None)
  Receive Date: 20110927
  Receipt Date: 20110920
  Transmission Date: 20111222
  Serious: Yes (Death)
  Sender: FDA-Public Use
  Company Number: US-ELI_LILLY_AND_COMPANY-US201109001717

PATIENT
  Sex: Male
  Weight: 129 kg

DRUGS (1)
  1. GEMZAR [Suspect]
     Indication: PANCREATIC CARCINOMA
     Dosage: 2000, MG, WEEKLY
     Route: 042
     Dates: start: 20100901, end: 20100922

REACTIONS (1)
  - NEOPLASM MALIGNANT [None]
